FAERS Safety Report 23404839 (Version 1)
Quarter: 2024Q1

REPORT INFORMATION
  Report Type: Spontaneous
  Country: BY (occurrence: BY)
  Receive Date: 20240116
  Receipt Date: 20240116
  Transmission Date: 20240410
  Serious: Yes (Death, Hospitalization, Other)
  Sender: FDA-Public Use
  Company Number: BY-BAYER-2024A006043

PATIENT
  Age: 41 Year
  Sex: Male

DRUGS (2)
  1. RIVAROXABAN [Suspect]
     Active Substance: RIVAROXABAN
     Indication: Product used for unknown indication
     Dosage: 20 MG
     Route: 048
  2. BISOPROLOL [Concomitant]
     Active Substance: BISOPROLOL\BISOPROLOL FUMARATE
     Dosage: 2.5 MG

REACTIONS (17)
  - Embolism [Fatal]
  - Asthenia [Unknown]
  - Body temperature increased [Unknown]
  - Cough [Unknown]
  - Tachyarrhythmia [Unknown]
  - Dyspnoea [Unknown]
  - Hyperhidrosis [Unknown]
  - Chest pain [Unknown]
  - Arrhythmia [Unknown]
  - Pulmonary embolism [Unknown]
  - Condition aggravated [Unknown]
  - Pallor [Unknown]
  - Cyanosis [Unknown]
  - Heart sounds abnormal [Unknown]
  - Atrial flutter [Unknown]
  - Post thrombotic syndrome [Unknown]
  - Pyrexia [Unknown]
